FAERS Safety Report 6095614-X (Version None)
Quarter: 2009Q1

REPORT INFORMATION
  Report Type: 
  Country: None (occurrence: None)
  Receive Date: 20090227
  Receipt Date: 20080528
  Transmission Date: 20090719
  Serious: Yes (Life-Threatening, Disabling)
  Sender: FDA-Public Use
  Company Number: A0726810A

PATIENT
  Age: 49 Year
  Sex: Male
  Weight: 94 kg

DRUGS (3)
  1. LAMICTAL [Suspect]
     Indication: BIPOLAR DISORDER
     Dosage: 100MG PER DAY
     Route: 048
  2. INVEGA [Suspect]
     Dosage: 3MG PER DAY
     Route: 048
     Dates: start: 20080318, end: 20080325
  3. LEXAPRO [Concomitant]
     Dosage: 20MG PER DAY
     Route: 048
     Dates: start: 20080204

REACTIONS (5)
  - BLOOD CREATINE PHOSPHOKINASE INCREASED [None]
  - BLOOD THYROID STIMULATING HORMONE INCREASED [None]
  - MYALGIA [None]
  - OEDEMA [None]
  - RHABDOMYOLYSIS [None]
